FAERS Safety Report 8837714 (Version 2)
Quarter: 2012Q4

REPORT INFORMATION
  Report Type: 
  Country: ES (occurrence: ES)
  Receive Date: 20121012
  Receipt Date: 20121016
  Transmission Date: 20130627
  Serious: Yes (Other)
  Sender: FDA-Public Use
  Company Number: ES-ABBOTT-12P-144-0992508-00

PATIENT
  Age: 52 Year
  Sex: Male

DRUGS (3)
  1. VALPROIC ACID [Suspect]
     Indication: EPILEPSY
  2. CLOBAZAM [Concomitant]
     Indication: EPILEPSY
  3. ZONISAMIDE [Concomitant]
     Indication: EPILEPSY

REACTIONS (3)
  - Cognitive disorder [Recovering/Resolving]
  - Toxic encephalopathy [Recovering/Resolving]
  - Cerebral atrophy [Recovered/Resolved]
